FAERS Safety Report 4303080-7 (Version None)
Quarter: 2004Q1

REPORT INFORMATION
  Report Type: 
  Country: None (occurrence: None)
  Receive Date: 20040126
  Receipt Date: 20030929
  Transmission Date: 20041129
  Serious: No
  Sender: FDA-Public Use
  Company Number: USA030948500

PATIENT
  Age: 10 Year
  Sex: Female
  Weight: 32 kg

DRUGS (3)
  1. STRATTERA [Suspect]
     Indication: ATTENTION DEFICIT/HYPERACTIVITY DISORDER
     Dosage: 40 MG/IN THE MORNING
  2. DITROPAN [Concomitant]
  3. IMIPRAMINE [Concomitant]

REACTIONS (11)
  - APATHY [None]
  - CRYING [None]
  - DIZZINESS [None]
  - DRUG INEFFECTIVE [None]
  - DYSPNOEA [None]
  - EAR INFECTION [None]
  - FATIGUE [None]
  - MOOD SWINGS [None]
  - PHARYNGITIS STREPTOCOCCAL [None]
  - PSYCHOMOTOR HYPERACTIVITY [None]
  - SOMNOLENCE [None]
